FAERS Safety Report 25227736 (Version 4)
Quarter: 2025Q2

REPORT INFORMATION
  Report Type: Spontaneous
  Country: IN (occurrence: IN)
  Receive Date: 20250423
  Receipt Date: 20250515
  Transmission Date: 20250716
  Serious: Yes (Death)
  Sender: ABBVIE
  Company Number: IN-ABBVIE-6245499

PATIENT
  Age: 30 Month
  Sex: Male
  Weight: 10 kg

DRUGS (5)
  1. BOTOX [Suspect]
     Active Substance: ONABOTULINUMTOXINA
     Indication: Cerebral palsy
     Route: 030
     Dates: start: 20250418, end: 20250418
  2. KETAMINE [Concomitant]
     Active Substance: KETAMINE
     Indication: Anaesthesia procedure
     Route: 042
     Dates: start: 20250418
  3. KETAMINE [Concomitant]
     Active Substance: KETAMINE
     Indication: Anaesthesia procedure
     Route: 030
     Dates: start: 20250418
  4. PROPOFOL [Concomitant]
     Active Substance: PROPOFOL
     Indication: Product used for unknown indication
     Route: 042
     Dates: start: 20250418
  5. ATROPINE [Concomitant]
     Active Substance: ATROPINE
     Indication: Product used for unknown indication
     Route: 030
     Dates: start: 20250418

REACTIONS (5)
  - Loss of consciousness [Fatal]
  - Vomiting [Unknown]
  - Bradycardia [Fatal]
  - Pupillary disorder [Unknown]
  - Multiple use of single-use product [Unknown]

NARRATIVE: CASE EVENT DATE: 20250418
